FAERS Safety Report 11327625 (Version 1)
Quarter: 2015Q3

REPORT INFORMATION
  Report Type: Spontaneous
  Country: US (occurrence: None)
  Receive Date: 20150730
  Receipt Date: 20150730
  Transmission Date: 20151125
  Serious: Yes (Hospitalization)
  Sender: FDA-Public Use
  Company Number: None

PATIENT
  Age: 58 Year
  Sex: Female
  Weight: 74.7 kg

DRUGS (4)
  1. CYTARABINE. [Suspect]
     Active Substance: CYTARABINE
     Dates: start: 20150702
  2. MERCAPTOPURINE. [Suspect]
     Active Substance: MERCAPTOPURINE
     Dates: start: 20150705
  3. CYCLOPHOSPHAMIDE. [Suspect]
     Active Substance: CYCLOPHOSPHAMIDE
     Dates: start: 20150622
  4. METHOTREXATE [Suspect]
     Active Substance: METHOTREXATE
     Dates: start: 20150713

REACTIONS (4)
  - Meningitis [None]
  - Pyrexia [None]
  - Post lumbar puncture syndrome [None]
  - Neck pain [None]

NARRATIVE: CASE EVENT DATE: 20150718
